FAERS Safety Report 10162429 (Version 1)
Quarter: 2014Q2

REPORT INFORMATION
  Report Type: Spontaneous
  Country: GB (occurrence: None)
  Receive Date: 20140507
  Receipt Date: 20140507
  Transmission Date: 20141212
  Serious: Yes (Hospitalization)
  Sender: FDA-Public Use
  Company Number: AUR-APL-2014-05270

PATIENT
  Age: 74 Year
  Sex: Female

DRUGS (6)
  1. CITALOPRAM (CITALOPRAM) [Suspect]
     Indication: DEPRESSION
     Route: 048
     Dates: end: 20140412
  2. ADCAL-D3(LEKOVIT CA) [Concomitant]
  3. LANSOPRAZOLE (LANSOPRAZOLE) [Concomitant]
  4. MIRTAZAPINE (MIRTAZAPINE) [Concomitant]
  5. RISPERIDONE (RISPERIDONE) [Concomitant]
  6. SENNA (SENNA ALEXANDRINA) [Concomitant]

REACTIONS (2)
  - Hypokalaemia [None]
  - Electrocardiogram QRS complex prolonged [None]
